FAERS Safety Report 11747910 (Version 1)
Quarter: 2015Q4

REPORT INFORMATION
  Report Type: Spontaneous
  Country: PT (occurrence: PT)
  Receive Date: 20151117
  Receipt Date: 20151117
  Transmission Date: 20160304
  Serious: Yes (Other)
  Sender: FDA-Public Use
  Company Number: PT-SIGMA-TAU US-2015STPI000902

PATIENT
  Age: 50 Year
  Sex: Male

DRUGS (12)
  1. GENTAMICIN. [Suspect]
     Active Substance: GENTAMICIN
  2. VANCOMYCIN [Suspect]
     Active Substance: VANCOMYCIN
  3. FLUCONAZOLE. [Suspect]
     Active Substance: FLUCONAZOLE
  4. MEROPENEM. [Suspect]
     Active Substance: MEROPENEM
  5. MYCOPHENOLATE MOFETIL. [Suspect]
     Active Substance: MYCOPHENOLATE MOFETIL
  6. AMPHOTERICIN B LIPID COMPLEX [Suspect]
     Active Substance: AMPHOTERICIN B
  7. CASPOFUNGIN [Suspect]
     Active Substance: CASPOFUNGIN
  8. CIPROFLOXACIN. [Suspect]
     Active Substance: CIPROFLOXACIN
  9. VORICONAZOLE. [Suspect]
     Active Substance: VORICONAZOLE
  10. ABELCET [Suspect]
     Active Substance: AMPHOTERICIN B\DIMYRISTOYLPHOSPHATIDYLCHOLINE, DL-\DIMYRISTOYLPHOSPHATIDYLGLYCEROL, DL-
     Indication: FUNGAL INFECTION
  11. PREDNISONE. [Suspect]
     Active Substance: PREDNISONE
  12. TACROLIMUS. [Suspect]
     Active Substance: TACROLIMUS

REACTIONS (2)
  - Embolism [Unknown]
  - Aspergillus infection [Unknown]
